FAERS Safety Report 4600245-1 (Version None)
Quarter: 2005Q1

REPORT INFORMATION
  Report Type: 
  Country: None (occurrence: None)
  Receive Date: 20050307
  Receipt Date: 20050302
  Transmission Date: 20050727
  Serious: Yes (Other)
  Sender: FDA-Public Use
  Company Number: US-GLAXOSMITHKLINE-A0548195A

PATIENT
  Age: 43 Year
  Sex: Male

DRUGS (2)
  1. LAMICTAL [Suspect]
     Indication: DRUG USE FOR UNKNOWN INDICATION
     Dosage: 25MG PER DAY
     Route: 048
  2. SEROQUEL [Concomitant]

REACTIONS (4)
  - AGGRESSION [None]
  - AGITATION [None]
  - EMOTIONAL DISORDER [None]
  - MANIA [None]
